FAERS Safety Report 15856746 (Version 3)
Quarter: 2019Q1

REPORT INFORMATION
  Report Type: Report from Study
  Country: None (occurrence: DE)
  Receive Date: 20190123
  Receipt Date: 20190225
  Transmission Date: 20190417
  Serious: Yes (Hospitalization, Other)
  Sender: FDA-Public Use
  Company Number: DE-ABBVIE-19K-062-2634901-00

PATIENT
  Age: 45 Year
  Sex: Male

DRUGS (7)
  1. EUTHYROX [Concomitant]
     Active Substance: LEVOTHYROXINE SODIUM
     Indication: PRODUCT USED FOR UNKNOWN INDICATION
  2. TOPISOLON [Concomitant]
     Indication: PRODUCT USED FOR UNKNOWN INDICATION
     Dosage: 2.5 MG/G
  3. HUMIRA [Suspect]
     Active Substance: ADALIMUMAB
     Indication: PRODUCT USED FOR UNKNOWN INDICATION
     Route: 058
  4. TORASEMID [Concomitant]
     Active Substance: TORSEMIDE
     Indication: PRODUCT USED FOR UNKNOWN INDICATION
  5. AMLODIPINE [Concomitant]
     Active Substance: AMLODIPINE BESYLATE
     Indication: PRODUCT USED FOR UNKNOWN INDICATION
  6. ACETYLSALICYLIC ACID [Concomitant]
     Active Substance: ASPIRIN
     Indication: PRODUCT USED FOR UNKNOWN INDICATION
  7. PANTOPRAZOL [Concomitant]
     Active Substance: PANTOPRAZOLE SODIUM
     Indication: PRODUCT USED FOR UNKNOWN INDICATION

REACTIONS (34)
  - Pneumothorax [Unknown]
  - Cardiovascular disorder [Recovered/Resolved]
  - Accident [Unknown]
  - Radius fracture [Unknown]
  - Enterococcal infection [Unknown]
  - Pain in extremity [Unknown]
  - Carotid artery perforation [Unknown]
  - Aspergillus infection [Unknown]
  - Dry skin [Unknown]
  - Cognitive disorder [Recovering/Resolving]
  - Neck pain [Unknown]
  - Coma [Recovered/Resolved]
  - Multiple injuries [Unknown]
  - Facial bones fracture [Unknown]
  - Fall [Unknown]
  - Eye swelling [Unknown]
  - Cerebrospinal fluid leakage [Unknown]
  - Thrombocytosis [Unknown]
  - General physical health deterioration [Unknown]
  - Pulmonary contusion [Unknown]
  - Arterial haemorrhage [Unknown]
  - Rib fracture [Unknown]
  - Pyrexia [Unknown]
  - Pancreatic injury [Unknown]
  - Carotid artery aneurysm [Unknown]
  - Craniocerebral injury [Unknown]
  - Wrist fracture [Unknown]
  - Skin exfoliation [Unknown]
  - Kidney contusion [Unknown]
  - Splenic rupture [Unknown]
  - Skull fractured base [Unknown]
  - Skull fracture [Unknown]
  - Subdural haematoma [Unknown]
  - Paranasal sinus haematoma [Unknown]

NARRATIVE: CASE EVENT DATE: 2018
